FAERS Safety Report 14335841 (Version 1)
Quarter: 2017Q4

REPORT INFORMATION
  Report Type: Spontaneous
  Country: US (occurrence: US)
  Receive Date: 20171229
  Receipt Date: 20171229
  Transmission Date: 20180321
  Serious: Yes (Hospitalization)
  Sender: FDA-Public Use
  Company Number: US-AMGEN-USASP2017190705

PATIENT
  Sex: Female

DRUGS (1)
  1. PROLIA [Suspect]
     Active Substance: DENOSUMAB
     Indication: BREAST CANCER
     Dosage: 60 MG, Q6MO
     Route: 065

REACTIONS (6)
  - Blood pressure decreased [Unknown]
  - Musculoskeletal chest pain [Unknown]
  - Jaw disorder [Unknown]
  - Facial pain [Unknown]
  - Pain in extremity [Unknown]
  - Groin pain [Unknown]
